FAERS Safety Report 11997462 (Version 3)
Quarter: 2016Q1

REPORT INFORMATION
  Report Type: Spontaneous
  Country: ES (occurrence: ES)
  Receive Date: 20160203
  Receipt Date: 20160304
  Transmission Date: 20160526
  Serious: Yes (Life-Threatening)
  Sender: FDA-Public Use
  Company Number: ES-AMGEN-ESPSP2016011501

PATIENT
  Age: 56 Year
  Sex: Female
  Weight: 67 kg

DRUGS (5)
  1. TORASEMIDE SODIUM [Concomitant]
     Dosage: 10 MG, QD
     Dates: start: 2013
  2. LIVAZO [Concomitant]
     Active Substance: PITAVASTATIN CALCIUM
     Dosage: 4 MG, DAILY
     Dates: start: 2014
  3. PROCORALAN [Suspect]
     Active Substance: IVABRADINE
     Indication: HEART RATE ABNORMAL
     Dosage: 7.5 MG, BID
     Route: 048
     Dates: start: 20160104
  4. LOSARTAN POTASSIUM. [Concomitant]
     Active Substance: LOSARTAN POTASSIUM
     Dosage: 100 MG, QD
     Dates: start: 2013
  5. PARIET [Concomitant]
     Active Substance: RABEPRAZOLE SODIUM
     Dosage: 20 MG, DAILY
     Dates: start: 2012

REACTIONS (1)
  - Ventricular tachycardia [Recovered/Resolved]

NARRATIVE: CASE EVENT DATE: 20160202
